FAERS Safety Report 23977878 (Version 2)
Quarter: 2024Q2

REPORT INFORMATION
  Report Type: Spontaneous
  Country: US (occurrence: US)
  Receive Date: 20240614
  Receipt Date: 20240626
  Transmission Date: 20240716
  Serious: No
  Sender: FDA-Public Use
  Company Number: US-Calliditas-2024CAL00964

PATIENT
  Age: 53 Year
  Sex: Female

DRUGS (1)
  1. TARPEYO [Suspect]
     Active Substance: BUDESONIDE
     Indication: IgA nephropathy
     Route: 048
     Dates: start: 20240419

REACTIONS (5)
  - Abdominal pain upper [Recovered/Resolved]
  - Cataract [Not Recovered/Not Resolved]
  - Faeces hard [Recovering/Resolving]
  - Dyschezia [Unknown]
  - Blood pressure increased [Recovered/Resolved]
